FAERS Safety Report 4451243-2 (Version None)
Quarter: 2004Q3

REPORT INFORMATION
  Report Type: 
  Country: None (occurrence: None)
  Receive Date: 20040915
  Receipt Date: 20040915
  Transmission Date: 20050211
  Serious: No
  Sender: FDA-Public Use
  Company Number: None

PATIENT
  Age: 14 Year
  Sex: Male
  Weight: 72.5755 kg

DRUGS (3)
  1. ZOLOFT [Suspect]
     Dosage: ORAL
     Route: 048
     Dates: start: 20010101
  2. DEPAKOTE [Concomitant]
  3. RISPERDAL [Concomitant]

REACTIONS (11)
  - ABNORMAL BEHAVIOUR [None]
  - DELUSION [None]
  - DISTRACTIBILITY [None]
  - DISTURBANCE IN ATTENTION [None]
  - EDUCATIONAL PROBLEM [None]
  - INSOMNIA [None]
  - IRRITABILITY [None]
  - JUDGEMENT IMPAIRED [None]
  - PARANOIA [None]
  - PRESSURE OF SPEECH [None]
  - SUICIDAL IDEATION [None]
